FAERS Safety Report 14266862 (Version 1)
Quarter: 2017Q4

REPORT INFORMATION
  Report Type: Spontaneous
  Country: US (occurrence: US)
  Receive Date: 20171211
  Receipt Date: 20171211
  Transmission Date: 20180321
  Serious: No
  Sender: FDA-Public Use
  Company Number: US-ASTRAZENECA-2017SF22840

PATIENT
  Sex: Female

DRUGS (4)
  1. SEROQUEL [Suspect]
     Active Substance: QUETIAPINE FUMARATE
     Indication: BIPOLAR DISORDER
     Dosage: 25.0MG UNKNOWN
     Route: 048
     Dates: start: 2005
  2. SEROQUEL [Suspect]
     Active Substance: QUETIAPINE FUMARATE
     Indication: BIPOLAR DISORDER
     Dosage: 15.0MG UNKNOWN
     Route: 048
  3. SEROQUEL [Suspect]
     Active Substance: QUETIAPINE FUMARATE
     Indication: BIPOLAR DISORDER
     Dosage: 50.0MG UNKNOWN
     Route: 048
  4. SEROQUEL [Suspect]
     Active Substance: QUETIAPINE FUMARATE
     Indication: BIPOLAR DISORDER
     Dosage: QUETIAPINE FUMARATE, HALF A 25 MG TABLET UNKNOWN
     Route: 048

REACTIONS (9)
  - Hypokinesia [Unknown]
  - Hallucination [Recovered/Resolved]
  - Feeling abnormal [Unknown]
  - Musculoskeletal stiffness [Unknown]
  - Myalgia [Unknown]
  - Feeling hot [Unknown]
  - Muscle tightness [Unknown]
  - Lethargy [Unknown]
  - Weight increased [Unknown]
